FAERS Safety Report 16175755 (Version 1)
Quarter: 2019Q2

REPORT INFORMATION
  Report Type: Spontaneous
  Country: US (occurrence: US)
  Receive Date: 20190409
  Receipt Date: 20190409
  Transmission Date: 20190711
  Serious: Yes (Hospitalization, Other)
  Sender: FDA-Public Use
  Company Number: US-PFIZER INC-2019137616

PATIENT
  Age: 69 Year
  Sex: Female
  Weight: 120.18 kg

DRUGS (3)
  1. HYDROCHLOROTHIAZIDE/OLMESARTAN [Concomitant]
     Indication: BLOOD PRESSURE ABNORMAL
     Dosage: 12.5/40 MG, UNK
  2. ROBITUSSIN COUGH AND CHEST CONGESTION SUGAR FREE DM [Suspect]
     Active Substance: DEXTROMETHORPHAN HYDROBROMIDE\GUAIFENESIN
     Indication: NASOPHARYNGITIS
     Dosage: 20 ML, UNK (SHE TOOK IT MAYBE IN THE MORNING AND IN THE AFTERNOON, 6 OR 8 HOURS LATER)
     Route: 048
     Dates: start: 20190310, end: 20190323
  3. HYDROCHLOROTHIAZIDE/OLMESARTAN [Concomitant]
     Dosage: 25/40 MG, UNK

REACTIONS (3)
  - Headache [Recovering/Resolving]
  - Myalgia [Recovering/Resolving]
  - Hypertension [Recovering/Resolving]

NARRATIVE: CASE EVENT DATE: 20190317
